FAERS Safety Report 9493482 (Version 2)
Quarter: 2013Q4

REPORT INFORMATION
  Report Type: Spontaneous
  Country: US (occurrence: US)
  Receive Date: 20130902
  Receipt Date: 20131119
  Transmission Date: 20140711
  Serious: Yes (Other)
  Sender: FDA-Public Use
  Company Number: US-ASTRAZENECA-2013SE65835

PATIENT
  Age: 80 Year
  Sex: Male
  Weight: 86.6 kg

DRUGS (8)
  1. SYMBICORT [Suspect]
     Indication: DYSPNOEA
     Dosage: 160-4.5 MCG, TWO INHALATIONS, BID
     Route: 055
     Dates: end: 201012
  2. SYMBICORT [Suspect]
     Indication: DYSPNOEA
     Dosage: UNKNOWN
     Route: 055
  3. ZOCOR [Concomitant]
  4. METFORMIN [Concomitant]
  5. CYMBALTA [Concomitant]
     Indication: PAIN
  6. OXYCODONE [Concomitant]
     Indication: PAIN
     Dosage: 7.5/325 PRN
  7. FOLIC ACID [Concomitant]
  8. ASPIRIN [Concomitant]

REACTIONS (2)
  - Lung cancer metastatic [Unknown]
  - Weight decreased [Unknown]
